FAERS Safety Report 25216248 (Version 1)
Quarter: 2025Q2

REPORT INFORMATION
  Report Type: Spontaneous
  Country: US (occurrence: US)
  Receive Date: 20250418
  Receipt Date: 20250418
  Transmission Date: 20250717
  Serious: Yes (Other)
  Sender: NOVARTIS
  Company Number: US-002147023-NVSC2025US063967

PATIENT
  Sex: Female

DRUGS (1)
  1. GILENYA [Suspect]
     Active Substance: FINGOLIMOD HYDROCHLORIDE
     Indication: Multiple sclerosis
     Route: 065
     Dates: start: 201208, end: 201307

REACTIONS (3)
  - Multiple sclerosis [Not Recovered/Not Resolved]
  - Body fat disorder [Not Recovered/Not Resolved]
  - Hypertension [Not Recovered/Not Resolved]
